FAERS Safety Report 9760367 (Version 1)
Quarter: 2013Q4

REPORT INFORMATION
  Report Type: Spontaneous
  Country: US (occurrence: US)
  Receive Date: 20131216
  Receipt Date: 20131216
  Transmission Date: 20140711
  Serious: No
  Sender: FDA-Public Use
  Company Number: US-GILEAD-2010-0029410

PATIENT
  Sex: Female
  Weight: 73.48 kg

DRUGS (18)
  1. LETAIRIS [Suspect]
     Indication: PULMONARY ARTERIAL HYPERTENSION
     Route: 048
     Dates: start: 20080321
  2. PREDNISONE [Concomitant]
  3. VICODIN [Concomitant]
  4. FUROSEMIDE [Concomitant]
  5. VITAMIN D [Concomitant]
  6. FLAXSEED OIL [Concomitant]
  7. AVAPRO [Concomitant]
  8. COD LIVER OIL [Concomitant]
  9. CO ENZYME Q10 [Concomitant]
  10. NEXIUM [Concomitant]
  11. GREEN TEA [Concomitant]
  12. MAGNESIUM [Concomitant]
  13. SPIRONOLACTONE [Concomitant]
  14. METOLAZONE [Concomitant]
  15. OXYGEN [Concomitant]
  16. DILTIAZEM ER [Concomitant]
  17. POTASSIUM [Concomitant]
  18. OMEPRAZOLE [Concomitant]

REACTIONS (1)
  - Blister [Unknown]
